FAERS Safety Report 6793097-5 (Version None)
Quarter: 2010Q2

REPORT INFORMATION
  Report Type: 
  Country: None (occurrence: None)
  Receive Date: 20100624
  Receipt Date: 20090827
  Transmission Date: 20101027
  Serious: Yes (Other)
  Sender: FDA-Public Use
  Company Number: US-MYLANLABS-2009S1006399

PATIENT
  Age: 22 Year
  Sex: Male

DRUGS (3)
  1. CLOZAPINE [Suspect]
     Indication: SCHIZOPHRENIA, PARANOID TYPE
     Route: 048
     Dates: start: 20081113, end: 20090718
  2. ABILIFY [Concomitant]
     Route: 048
  3. ALBUTEROL [Concomitant]
     Route: 055

REACTIONS (1)
  - GRANULOCYTOPENIA [None]
